FAERS Safety Report 6567594-1 (Version None)
Quarter: 2010Q1

REPORT INFORMATION
  Report Type: 
  Country: None (occurrence: None)
  Receive Date: 20100202
  Receipt Date: 20100127
  Transmission Date: 20100710
  Serious: Yes (Hospitalization, Other)
  Sender: FDA-Public Use
  Company Number: PHHO2008CA14524

PATIENT
  Sex: Male
  Weight: 76.3 kg

DRUGS (1)
  1. AMN107 AMN+CAP [Suspect]
     Indication: CHRONIC MYELOID LEUKAEMIA
     Dosage: 400 MG, BID
     Route: 048
     Dates: start: 20070514

REACTIONS (10)
  - ACUTE RESPIRATORY DISTRESS SYNDROME [None]
  - ALVEOLITIS [None]
  - ALVEOLITIS ALLERGIC [None]
  - ALVEOLITIS FIBROSING [None]
  - ASTHMATIC CRISIS [None]
  - CONCOMITANT DISEASE PROGRESSION [None]
  - DYSPNOEA [None]
  - DYSPNOEA EXERTIONAL [None]
  - MORAXELLA INFECTION [None]
  - PNEUMONIA [None]
